FAERS Safety Report 12130597 (Version 2)
Quarter: 2018Q1

REPORT INFORMATION
  Report Type: Report from Study
  Country: US (occurrence: US)
  Receive Date: 20160301
  Receipt Date: 20180119
  Transmission Date: 20180508
  Serious: Yes (Other)
  Sender: FDA-Public Use
  Company Number: US-ASTRAZENECA-2016SE15784

PATIENT
  Sex: Male
  Weight: 90.7 kg

DRUGS (3)
  1. BYETTA [Suspect]
     Active Substance: EXENATIDE
     Indication: TYPE 2 DIABETES MELLITUS
     Dosage: UNKNOWN DOSE
     Route: 058
  2. FARXIGA [Suspect]
     Active Substance: DAPAGLIFLOZIN PROPANEDIOL
     Indication: TYPE 2 DIABETES MELLITUS
     Route: 048
  3. BYDUREON [Suspect]
     Active Substance: EXENATIDE
     Indication: TYPE 2 DIABETES MELLITUS
     Route: 058

REACTIONS (17)
  - Penile swelling [Recovered/Resolved]
  - Genital pain [Recovered/Resolved]
  - Weight increased [Unknown]
  - Penile haemorrhage [Recovered/Resolved]
  - Anal haemorrhage [Recovered/Resolved]
  - Rectal abscess [Recovered/Resolved]
  - Pruritus [Recovered/Resolved]
  - Injection site extravasation [Unknown]
  - Eye pruritus [Recovered/Resolved]
  - Blood sodium decreased [Recovered/Resolved]
  - Needle issue [Unknown]
  - Snoring [Unknown]
  - Injection site infection [Unknown]
  - Wrong technique in device usage process [Unknown]
  - Vision blurred [Not Recovered/Not Resolved]
  - Kidney infection [Recovered/Resolved]
  - Injection site pain [Unknown]
